FAERS Safety Report 4955803-1 (Version None)
Quarter: 2006Q1

REPORT INFORMATION
  Report Type: 
  Country: None (occurrence: None)
  Receive Date: 20060323
  Receipt Date: 20060310
  Transmission Date: 20060701
  Serious: Yes (Hospitalization, Other)
  Sender: FDA-Public Use
  Company Number: HQWYE307513MAR06

PATIENT
  Age: 41 Year
  Sex: Female

DRUGS (2)
  1. EFFEXOR XR [Suspect]
     Dosage: 75 MG 1X PER 1 DAY ORAL
     Route: 048
     Dates: start: 20040101, end: 20060301
  2. LEVOPHED [Suspect]
     Indication: HYPOTENSION
     Dosage: INTRAVENOUS
     Route: 042
     Dates: start: 20060301, end: 20060301

REACTIONS (1)
  - ACUTE CORONARY SYNDROME [None]
